FAERS Safety Report 14286874 (Version 1)
Quarter: 2017Q4

REPORT INFORMATION
  Report Type: Spontaneous
  Country: ES (occurrence: ES)
  Receive Date: 20171214
  Receipt Date: 20171214
  Transmission Date: 20180321
  Serious: Yes (Other)
  Sender: FDA-Public Use
  Company Number: ES-IPSEN BIOPHARMACEUTICALS, INC.-2017-15729

PATIENT
  Age: 68 Year
  Sex: Female

DRUGS (4)
  1. SOMATULINA AUTOGEL 120MG [Suspect]
     Active Substance: LANREOTIDE ACETATE
     Indication: OFF LABEL USE
  2. OCTREOTIDE. [Concomitant]
     Active Substance: OCTREOTIDE
     Route: 058
  3. SOMATULINA AUTOGEL 120MG [Suspect]
     Active Substance: LANREOTIDE ACETATE
     Indication: CARCINOID TUMOUR PULMONARY
     Dosage: 120 MG
     Route: 065
     Dates: start: 2016
  4. SOMATULINA AUTOGEL 120MG [Suspect]
     Active Substance: LANREOTIDE ACETATE
     Indication: HEPATIC CANCER RECURRENT

REACTIONS (2)
  - Off label use [Unknown]
  - Neoplasm progression [Recovering/Resolving]

NARRATIVE: CASE EVENT DATE: 201705
